FAERS Safety Report 7753924-1 (Version None)
Quarter: 2011Q3

REPORT INFORMATION
  Report Type: 
  Country: None (occurrence: None)
  Receive Date: 20110915
  Receipt Date: 20110906
  Transmission Date: 20111222
  Serious: Yes (Hospitalization)
  Sender: FDA-Public Use
  Company Number: BR-ASTRAZENECA-2011SE53975

PATIENT
  Age: 65 Year
  Sex: Female
  Weight: 76 kg

DRUGS (4)
  1. VYTORIN [Concomitant]
     Indication: HYPERCHOLESTEROLAEMIA
     Route: 048
     Dates: start: 20050101
  2. LEVOTHYROXINE SODIUM [Concomitant]
     Indication: THYROID DISORDER
     Route: 048
     Dates: start: 20050101
  3. BROMAZEPAN [Concomitant]
     Route: 048
     Dates: start: 20050101
  4. METOPROLOL SUCCINATE [Suspect]
     Indication: HYPERTENSION
     Dosage: DAILY
     Route: 048
     Dates: start: 20070101

REACTIONS (2)
  - NECK MASS [None]
  - PAROTID GLAND ENLARGEMENT [None]
